FAERS Safety Report 8215754-6 (Version None)
Quarter: 2012Q1

REPORT INFORMATION
  Report Type: 
  Country: None (occurrence: None)
  Receive Date: 20120316
  Receipt Date: 20120313
  Transmission Date: 20120608
  Serious: Yes (Life-Threatening, Hospitalization, Other)
  Sender: FDA-Public Use
  Company Number: US-BAYER-200937154NA

PATIENT
  Age: 33 Year
  Sex: Female
  Weight: 106.82 kg

DRUGS (6)
  1. SYNTHROID [Concomitant]
     Indication: HYPOTHYROIDISM
  2. YASMIN [Suspect]
     Indication: PREMENSTRUAL SYNDROME
     Route: 048
     Dates: start: 20060101, end: 20071001
  3. LEVOTHYROXINE SODIUM [Concomitant]
  4. CIPROFLOXACIN HYDROCHLORIDE [Concomitant]
  5. ASCORBIC ACID [Concomitant]
  6. ANTIMIGRAINE PREPARATIONS [Concomitant]

REACTIONS (13)
  - PULMONARY EMBOLISM [None]
  - DYSPNOEA [None]
  - EMBOLISM VENOUS [None]
  - MUSCULOSKELETAL PAIN [None]
  - HEPATIC ADENOMA [None]
  - DIZZINESS [None]
  - PULMONARY INFARCTION [None]
  - PNEUMONIA [None]
  - LOSS OF CONSCIOUSNESS [None]
  - TACHYCARDIA [None]
  - PAIN IN EXTREMITY [None]
  - PELVIC VENOUS THROMBOSIS [None]
  - URINARY TRACT INFECTION [None]
